FAERS Safety Report 13941350 (Version 2)
Quarter: 2017Q3

REPORT INFORMATION
  Report Type: Report from Study
  Country: US (occurrence: US)
  Receive Date: 20170906
  Receipt Date: 20170920
  Transmission Date: 20171127
  Serious: Yes (Death, Hospitalization, Other)
  Sender: FDA-Public Use
  Company Number: US-GILEAD-2017-0286797

PATIENT
  Age: 74 Year
  Sex: Female
  Weight: 68.93 kg

DRUGS (5)
  1. FENTANYL. [Concomitant]
     Active Substance: FENTANYL
     Dosage: UNK
  2. DEXAMETHASONE. [Concomitant]
     Active Substance: DEXAMETHASONE
  3. IDELALISIB [Suspect]
     Active Substance: IDELALISIB
     Indication: CHRONIC LYMPHOCYTIC LEUKAEMIA
     Dosage: 150 MG DAILY
     Route: 048
     Dates: start: 20170504
  4. IDELALISIB [Suspect]
     Active Substance: IDELALISIB
     Dosage: 150 MG DAILY
     Route: 048
     Dates: start: 20170722, end: 20170818
  5. COLACE [Concomitant]
     Active Substance: DOCUSATE SODIUM
     Dosage: UNK

REACTIONS (10)
  - Cellulitis [Unknown]
  - Fatigue [Recovering/Resolving]
  - Off label use [Recovered/Resolved]
  - Wound infection [Unknown]
  - Death [Fatal]
  - Thrombosis [Unknown]
  - Limb injury [Unknown]
  - Nausea [Recovering/Resolving]
  - Abdominal pain [Recovering/Resolving]
  - Abdominal neoplasm [Recovering/Resolving]

NARRATIVE: CASE EVENT DATE: 20170722
